FAERS Safety Report 24549146 (Version 1)
Quarter: 2024Q4

REPORT INFORMATION
  Report Type: Report from Study
  Country: US (occurrence: US)
  Receive Date: 20241025
  Receipt Date: 20241025
  Transmission Date: 20250114
  Serious: Yes (Other)
  Sender: ABBVIE
  Company Number: US-ABBVIE-5971952

PATIENT
  Age: 77 Year
  Sex: Female

DRUGS (1)
  1. HUMIRA [Suspect]
     Active Substance: ADALIMUMAB
     Indication: Product used for unknown indication
     Route: 058
     Dates: start: 20160811

REACTIONS (3)
  - Cerebral haemorrhage [Recovering/Resolving]
  - Fall [Recovering/Resolving]
  - Craniofacial fracture [Recovering/Resolving]

NARRATIVE: CASE EVENT DATE: 20241004
